FAERS Safety Report 8462592-5 (Version None)
Quarter: 2012Q2

REPORT INFORMATION
  Report Type: 
  Country: None (occurrence: None)
  Receive Date: 20120625
  Receipt Date: 20120306
  Transmission Date: 20120825
  Serious: No
  Sender: FDA-Public Use
  Company Number: US-BAUSCH-2012BL002023

PATIENT
  Sex: Female

DRUGS (1)
  1. BESIVANCE [Suspect]
     Indication: CONJUNCTIVITIS

REACTIONS (2)
  - PALPITATIONS [None]
  - FEELING JITTERY [None]
